FAERS Safety Report 6122173-5 (Version None)
Quarter: 2009Q1

REPORT INFORMATION
  Report Type: 
  Country: None (occurrence: None)
  Receive Date: 20090318
  Receipt Date: 20090317
  Transmission Date: 20090719
  Serious: No
  Sender: FDA-Public Use
  Company Number: GB-JNJFOC-20090303863

PATIENT
  Sex: Male
  Weight: 133.36 kg

DRUGS (1)
  1. DURAGESIC-100 [Suspect]
     Indication: ANALGESIA
     Route: 062

REACTIONS (6)
  - AGITATION [None]
  - IRRITABILITY [None]
  - POLLAKIURIA [None]
  - PRURITUS [None]
  - RESTLESSNESS [None]
  - WRONG TECHNIQUE IN DRUG USAGE PROCESS [None]
